FAERS Safety Report 11071938 (Version 2)
Quarter: 2015Q2

REPORT INFORMATION
  Report Type: Spontaneous
  Country: FR (occurrence: FR)
  Receive Date: 20150428
  Receipt Date: 20150519
  Transmission Date: 20150821
  Serious: Yes (Death, Hospitalization, Other)
  Sender: FDA-Public Use
  Company Number: FR-PFIZER INC-2015142735

PATIENT
  Age: 79 Year
  Sex: Female

DRUGS (5)
  1. HEMIGOXINE NATIVELLE [Interacting]
     Active Substance: DIGOXIN
     Dosage: UNK
     Route: 048
     Dates: end: 20120614
  2. OLMETEC [Concomitant]
     Active Substance: OLMESARTAN MEDOXOMIL
     Dosage: UNK MG, UNK
     Dates: end: 20120612
  3. CORDARONE [Suspect]
     Active Substance: AMIODARONE HYDROCHLORIDE
     Dosage: UNK
     Route: 048
     Dates: end: 20120615
  4. LASILIX [Concomitant]
     Active Substance: FUROSEMIDE
     Dosage: 500 MG, DAILY
     Dates: start: 20120612
  5. LASILIX [Concomitant]
     Active Substance: FUROSEMIDE
     Dosage: UNK

REACTIONS (6)
  - Sinus arrhythmia [Fatal]
  - Renal failure [Unknown]
  - Drug interaction [Fatal]
  - Bradycardia [Fatal]
  - Cardiogenic shock [Fatal]
  - Bundle branch block [Fatal]

NARRATIVE: CASE EVENT DATE: 20120612
